FAERS Safety Report 11760118 (Version 1)
Quarter: 2015Q4

REPORT INFORMATION
  Report Type: Report from Study
  Country: VE (occurrence: VE)
  Receive Date: 20151120
  Receipt Date: 20151120
  Transmission Date: 20160304
  Serious: Yes (Hospitalization, Other)
  Sender: FDA-Public Use
  Company Number: PHHY2015VE150379

PATIENT
  Sex: Male

DRUGS (4)
  1. FOLIC ACID. [Concomitant]
     Active Substance: FOLIC ACID
     Indication: PRODUCT USED FOR UNKNOWN INDICATION
     Dosage: 10 MG, QD
  2. NEORAL [Suspect]
     Active Substance: CYCLOSPORINE
     Indication: BIOPSY
     Dosage: 100 MG, 8QD
     Route: 048
     Dates: start: 2015
  3. PREDNISONE. [Concomitant]
     Active Substance: PREDNISONE
     Indication: PRODUCT USED FOR UNKNOWN INDICATION
     Dosage: 50 MG, QD
     Route: 065
  4. PREDNISONE. [Concomitant]
     Active Substance: PREDNISONE
     Dosage: 25 MG, QD
     Route: 065

REACTIONS (7)
  - Liver disorder [Recovered/Resolved]
  - Infection [Recovered/Resolved]
  - Pancreatic disorder [Recovered/Resolved]
  - Haemoglobin decreased [Recovered/Resolved]
  - Product use issue [Unknown]
  - Mouth ulceration [Recovered/Resolved]
  - Abdominal pain upper [Recovered/Resolved]
